FAERS Safety Report 12115034 (Version 1)
Quarter: 2016Q1

REPORT INFORMATION
  Report Type: Spontaneous
  Country: US (occurrence: None)
  Receive Date: 20160224
  Receipt Date: 20160224
  Transmission Date: 20160526
  Serious: No
  Sender: FDA-Public Use
  Company Number: None

PATIENT
  Age: 43 Year
  Sex: Male
  Weight: 79.38 kg

DRUGS (6)
  1. HUMALOG [Suspect]
     Active Substance: INSULIN LISPRO
     Indication: TYPE 1 DIABETES MELLITUS
     Dosage: UP TO 100 UNITS DAILY AS NEEDED INTO THE MUSCLE
     Route: 030
     Dates: start: 20160125, end: 20160201
  2. L-THYROXINE [Concomitant]
     Active Substance: LEVOTHYROXINE
  3. NATURE MADE DIABETES HEALTH PACK [Concomitant]
  4. TROUJEO [Concomitant]
  5. METFORMIN [Concomitant]
     Active Substance: METFORMIN HYDROCHLORIDE
  6. HUMALOG [Concomitant]
     Active Substance: INSULIN LISPRO

REACTIONS (3)
  - Blood glucose increased [None]
  - Drug ineffective [None]
  - Product quality issue [None]
